FAERS Safety Report 5133392-9 (Version None)
Quarter: 2006Q4

REPORT INFORMATION
  Report Type: 
  Country: None (occurrence: None)
  Receive Date: 20061020
  Receipt Date: 20061020
  Transmission Date: 20070319
  Serious: No
  Sender: FDA-Public Use
  Company Number: None

PATIENT

DRUGS (2)
  1. EPINEPHRINE [Suspect]
     Indication: INFECTION
     Dosage: 432 MG -27 ML- EVERY 8 HOURS IV
     Route: 042
     Dates: start: 20061016, end: 20061016
  2. SULFAMETHOXAZOLE + TRIMETHOPRIM [Suspect]

REACTIONS (2)
  - INTERCEPTED MEDICATION ERROR [None]
  - MEDICATION ERROR [None]
